FAERS Safety Report 7547051-6 (Version None)
Quarter: 2011Q2

REPORT INFORMATION
  Report Type: 
  Country: None (occurrence: None)
  Receive Date: 20110524
  Receipt Date: 20110215
  Transmission Date: 20111010
  Serious: No
  Sender: FDA-Public Use
  Company Number: 027701

PATIENT
  Sex: Female
  Weight: 74 kg

DRUGS (12)
  1. NAPROXEN [Concomitant]
  2. AMBIEN [Concomitant]
  3. METFORMIN HCL [Concomitant]
  4. TOPIRAMATE [Concomitant]
  5. NEXIUM [Concomitant]
  6. HYDROCHLOROTHIAZIDE [Concomitant]
  7. PREDNISONE [Concomitant]
  8. LEVOTHROID [Concomitant]
  9. CIMZIA [Suspect]
     Indication: RHEUMATOID ARTHRITIS
     Dosage: (2 SHOTS SUBCUTANEOUS) ; (2 SHOTS, EVERY TWO WEEKS INITIALLY SUBCUTANEOUS)
     Route: 058
     Dates: start: 20110211
  10. CIMZIA [Suspect]
     Indication: RHEUMATOID ARTHRITIS
     Dosage: (2 SHOTS SUBCUTANEOUS) ; (2 SHOTS, EVERY TWO WEEKS INITIALLY SUBCUTANEOUS)
     Route: 058
     Dates: start: 20101001, end: 20101230
  11. METHOTREXATE [Concomitant]
  12. GLIMEPIRIDE [Concomitant]

REACTIONS (6)
  - LIP SWELLING [None]
  - OEDEMA PERIPHERAL [None]
  - JOINT SWELLING [None]
  - VITREOUS FLOATERS [None]
  - INFLUENZA LIKE ILLNESS [None]
  - SWELLING FACE [None]
